FAERS Safety Report 8835350 (Version 1)
Quarter: 2012Q4

REPORT INFORMATION
  Report Type: 
  Country: CZ (occurrence: CZ)
  Receive Date: 20121011
  Receipt Date: 20121011
  Transmission Date: 20130627
  Serious: Yes (Other)
  Sender: FDA-Public Use
  Company Number: CZ-BRISTOL-MYERS SQUIBB COMPANY-17005323

PATIENT
  Age: 60 Year
  Sex: Male

DRUGS (2)
  1. ORENCIA [Suspect]
     Indication: RHEUMATOID ARTHRITIS
     Dosage: infusions
     Route: 042
     Dates: start: 20120314, end: 20120927
  2. METOJECT [Suspect]
     Dates: start: 20110630

REACTIONS (2)
  - Hypersensitivity [Recovered/Resolved]
  - Product solubility abnormal [Unknown]
